FAERS Safety Report 6333915-8 (Version None)
Quarter: 2009Q3

REPORT INFORMATION
  Report Type: 
  Country: None (occurrence: None)
  Receive Date: 20090829
  Receipt Date: 20090625
  Transmission Date: 20100115
  Serious: No
  Sender: FDA-Public Use
  Company Number: US-ABBOTT-09P-163-0582200-00

PATIENT
  Sex: Male
  Weight: 97.61 kg

DRUGS (5)
  1. SIMCOR [Suspect]
     Indication: BLOOD CHOLESTEROL
     Dosage: UNSURE OF STRENGTH
     Route: 048
     Dates: start: 20090501
  2. UNKNOWN ANTIDEPRESSANT [Concomitant]
     Indication: DEPRESSION
     Route: 048
  3. UNKNOWN ANTIDEPRESSANT # 2 [Concomitant]
     Indication: DEPRESSION
     Route: 048
  4. ASPIRIN [Concomitant]
     Indication: FLUSHING
     Route: 048
  5. ASPIRIN [Concomitant]
     Indication: PROPHYLAXIS

REACTIONS (3)
  - FLUSHING [None]
  - PRURITUS [None]
  - URTICARIA [None]
